FAERS Safety Report 14211126 (Version 1)
Quarter: 2017Q4

REPORT INFORMATION
  Report Type: Spontaneous
  Country: FR (occurrence: FR)
  Receive Date: 20171121
  Receipt Date: 20171121
  Transmission Date: 20180321
  Serious: Yes (Other)
  Sender: FDA-Public Use
  Company Number: FR-PFIZER INC-2017317479

PATIENT
  Age: 84 Year
  Sex: Female

DRUGS (1)
  1. XALATAN [Suspect]
     Active Substance: LATANOPROST
     Dosage: 2 GTT, DAILY (ONE DROP IN EACH EYE)

REACTIONS (8)
  - Eye irritation [Unknown]
  - Asthenopia [Unknown]
  - Vision blurred [Unknown]
  - Dry eye [Unknown]
  - Photophobia [Unknown]
  - Cataract [Unknown]
  - Eye pain [Unknown]
  - Visual acuity reduced [Unknown]
